FAERS Safety Report 5756000-2 (Version None)
Quarter: 2008Q2

REPORT INFORMATION
  Report Type: 
  Country: None (occurrence: None)
  Receive Date: 20080602
  Receipt Date: 20080408
  Transmission Date: 20081010
  Serious: No
  Sender: FDA-Public Use
  Company Number: US-ABBOTT-08P-163-0446571-00

PATIENT

DRUGS (2)
  1. ZEMPLAR [Suspect]
     Indication: HEPATITIS C
  2. INTERFERON THERAPY [Concomitant]
     Indication: HEPATITIS C

REACTIONS (1)
  - HYPOCALCAEMIA [None]
